FAERS Safety Report 9418777 (Version 1)
Quarter: 2013Q3

REPORT INFORMATION
  Report Type: Spontaneous
  Country: US (occurrence: US)
  Receive Date: 20130725
  Receipt Date: 20130725
  Transmission Date: 20140515
  Serious: No
  Sender: FDA-Public Use
  Company Number: US-PFIZER INC-2013213215

PATIENT
  Age: 67 Year
  Sex: Male
  Weight: 83.9 kg

DRUGS (2)
  1. XALATAN [Suspect]
     Indication: GLAUCOMA
     Dosage: 1 GTT IN EACH EYE, 1X/DAY
     Route: 047
     Dates: end: 20130716
  2. XALATAN [Suspect]
     Dosage: UNK
     Route: 047
     Dates: start: 20130718

REACTIONS (2)
  - Headache [Not Recovered/Not Resolved]
  - Product quality issue [Unknown]
